FAERS Safety Report 7367868-0 (Version None)
Quarter: 2011Q1

REPORT INFORMATION
  Report Type: 
  Country: None (occurrence: None)
  Receive Date: 20110322
  Receipt Date: 20110308
  Transmission Date: 20110831
  Serious: Yes (Hospitalization)
  Sender: FDA-Public Use
  Company Number: JP-AMGEN-JPNCT2010004664

PATIENT
  Age: 75 Year
  Sex: Male
  Weight: 72 kg

DRUGS (9)
  1. PANITUMUMAB [Suspect]
     Indication: COLORECTAL CANCER
     Dosage: 6 MG/KG, Q2WK
     Route: 041
     Dates: start: 20101022
  2. CORTICOSTEROIDS [Concomitant]
     Indication: PROPHYLAXIS
     Route: 065
  3. TOPOTECAN [Concomitant]
  4. TOPOTECAN [Concomitant]
     Indication: COLORECTAL CANCER
     Dosage: 90 MG, QWK
     Route: 041
     Dates: start: 20101022
  5. ANTIHISTAMINES [Concomitant]
     Indication: PROPHYLAXIS
     Route: 065
  6. DECADRON [Concomitant]
     Route: 042
  7. LYRICA [Concomitant]
     Route: 048
  8. MINOMYCIN [Concomitant]
     Route: 048
  9. KYTRIL [Concomitant]
     Route: 042

REACTIONS (3)
  - DERMATITIS ACNEIFORM [None]
  - NEUTROPENIA [None]
  - PARONYCHIA [None]
